FAERS Safety Report 10709171 (Version 3)
Quarter: 2015Q4

REPORT INFORMATION
  Report Type: Spontaneous
  Country: US (occurrence: US)
  Receive Date: 20150114
  Receipt Date: 20151209
  Transmission Date: 20160304
  Serious: Yes (Other)
  Sender: FDA-Public Use
  Company Number: US-AMGEN-USASL2015001960

PATIENT
  Age: 68 Year
  Sex: Female

DRUGS (2)
  1. ENBREL [Suspect]
     Active Substance: ETANERCEPT
     Indication: RHEUMATOID ARTHRITIS
     Dosage: 50 MG, QWK
     Route: 058
     Dates: start: 201202, end: 201507
  2. ENBREL [Suspect]
     Active Substance: ETANERCEPT
     Dosage: 50 MG, QWK
     Route: 058
     Dates: start: 201512

REACTIONS (6)
  - Bronchitis [Unknown]
  - Ear infection [Recovered/Resolved]
  - Blood pressure increased [Not Recovered/Not Resolved]
  - Sinusitis [Recovered/Resolved]
  - Gastric infection [Recovering/Resolving]
  - Feeding disorder [Recovering/Resolving]

NARRATIVE: CASE EVENT DATE: 201510
